FAERS Safety Report 23716567 (Version 2)
Quarter: 2024Q2

REPORT INFORMATION
  Report Type: Report from Study
  Country: US (occurrence: US)
  Receive Date: 20240408
  Receipt Date: 20240409
  Transmission Date: 20240716
  Serious: Yes (Death, Other)
  Sender: FDA-Public Use
  Company Number: US-GILEAD-2024-0668300

PATIENT
  Age: 76 Year
  Sex: Male

DRUGS (15)
  1. AZTREONAM LYSINE [Suspect]
     Active Substance: AZTREONAM LYSINE
     Indication: Infective exacerbation of bronchiectasis
     Dosage: INHALE 1 VIAL (75 MG) VIA ALTERA NEBULIZER THREE TIMES DAILY, 28 DAYS ON 28 DAYS OFF
     Route: 055
  2. AZTREONAM LYSINE [Suspect]
     Active Substance: AZTREONAM LYSINE
     Indication: Bronchiectasis
  3. AZTREONAM LYSINE [Suspect]
     Active Substance: AZTREONAM LYSINE
     Indication: Pseudomonas infection
  4. PULMICORT TURBUHALER [Concomitant]
     Active Substance: BUDESONIDE
  5. ALBUTEROL SULFATE\IPRATROPIUM BROMIDE [Concomitant]
     Active Substance: ALBUTEROL SULFATE\IPRATROPIUM BROMIDE
  6. BUDESONIDE [Concomitant]
     Active Substance: BUDESONIDE
  7. FUROSEMIDE [Concomitant]
     Active Substance: FUROSEMIDE
  8. IMBRUVICA [Concomitant]
     Active Substance: IBRUTINIB
  9. PROPRANOLOL [Concomitant]
     Active Substance: PROPRANOLOL HYDROCHLORIDE
  10. SODIUM ACETATE [Concomitant]
     Active Substance: SODIUM ACETATE
  11. LOSARTAN [Concomitant]
     Active Substance: LOSARTAN
  12. DOXYCYCLINE [Concomitant]
     Active Substance: DOXYCYCLINE
  13. SIMVASTATIN [Concomitant]
     Active Substance: SIMVASTATIN
  14. SPIRONOLACTONE [Concomitant]
     Active Substance: SPIRONOLACTONE
  15. OXYGEN [Concomitant]
     Active Substance: OXYGEN

REACTIONS (2)
  - Death [Fatal]
  - Off label use [Unknown]

NARRATIVE: CASE EVENT DATE: 20240225
